FAERS Safety Report 17407432 (Version 1)
Quarter: 2020Q1

REPORT INFORMATION
  Report Type: Spontaneous
  Country: US (occurrence: US)
  Receive Date: 20200128
  Receipt Date: 20200128
  Transmission Date: 20200409
  Serious: Yes (Life-Threatening)
  Sender: FDA-Public Use
  Company Number: None

PATIENT
  Age: 72 Year
  Sex: Male

DRUGS (1)
  1. IOHEXOL (IOHEXOL 388.3MG/ML INJ) [Suspect]
     Active Substance: IOHEXOL
     Indication: IMAGING PROCEDURE
     Dates: start: 20200127, end: 20200127

REACTIONS (5)
  - Pulse absent [None]
  - Syncope [None]
  - Contrast media reaction [None]
  - Hypertension [None]
  - Hypotension [None]

NARRATIVE: CASE EVENT DATE: 20200127
